FAERS Safety Report 9775549 (Version 3)
Quarter: 2014Q1

REPORT INFORMATION
  Report Type: Spontaneous
  Country: US (occurrence: None)
  Receive Date: 20131218
  Receipt Date: 20140224
  Transmission Date: 20141002
  Serious: Yes (Hospitalization)
  Sender: FDA-Public Use
  Company Number: 2013-00157

PATIENT
  Age: 70 Year
  Sex: Female
  Weight: 56.7 kg

DRUGS (4)
  1. ZICAM COLD REMEDY ORAL MIST [Suspect]
     Indication: NASOPHARYNGITIS
     Dosage: SPRAYED ORALLY EVERY 3 HOURS
     Route: 048
     Dates: start: 20131201, end: 20131202
  2. SYNTHROID [Concomitant]
  3. LANTUS [Concomitant]
  4. HUMALOG [Concomitant]

REACTIONS (10)
  - Movement disorder [None]
  - Loss of consciousness [None]
  - Fall [None]
  - Head injury [None]
  - Blood pressure decreased [None]
  - Heart rate increased [None]
  - Myocardial infarction [None]
  - Muscle rigidity [None]
  - Pain [None]
  - Musculoskeletal stiffness [None]
